FAERS Safety Report 13767933 (Version 1)
Quarter: 2017Q3

REPORT INFORMATION
  Report Type: Spontaneous
  Country: US (occurrence: US)
  Receive Date: 20170719
  Receipt Date: 20170719
  Transmission Date: 20171127
  Serious: No
  Sender: FDA-Public Use
  Company Number: US-PFIZER INC-2017308430

PATIENT
  Age: 59 Year
  Sex: Male
  Weight: 61.23 kg

DRUGS (1)
  1. LYRICA [Suspect]
     Active Substance: PREGABALIN
     Indication: SMALL FIBRE NEUROPATHY
     Dosage: UNK

REACTIONS (5)
  - Burning sensation [Recovering/Resolving]
  - Rash [Recovering/Resolving]
  - Blister [Recovering/Resolving]
  - Drug hypersensitivity [Recovering/Resolving]
  - Rash macular [Recovering/Resolving]
